FAERS Safety Report 19711239 (Version 3)
Quarter: 2021Q4

REPORT INFORMATION
  Report Type: Spontaneous
  Country: CA (occurrence: CA)
  Receive Date: 20210817
  Receipt Date: 20211224
  Transmission Date: 20220303
  Serious: Yes (Hospitalization, Other)
  Sender: FDA-Public Use
  Company Number: CA-TAKEDA-2021TUS049925

PATIENT
  Age: 29 Year
  Sex: Female
  Weight: 61 kg

DRUGS (8)
  1. GAMMAGARD LIQUID [Suspect]
     Active Substance: HUMAN IMMUNOGLOBULIN G
     Indication: Immunodeficiency common variable
     Dosage: 20 GRAM
     Route: 065
     Dates: start: 20210729, end: 20210729
  2. GAMMAGARD LIQUID [Suspect]
     Active Substance: HUMAN IMMUNOGLOBULIN G
     Dosage: 20 GRAM, QD
     Route: 042
  3. ALBUMIN HUMAN [Concomitant]
     Active Substance: ALBUMIN HUMAN
     Indication: Product used for unknown indication
     Dosage: 100 CC PER HR CONTINUOUS INFUSION
     Route: 065
     Dates: start: 20210729, end: 20210729
  4. ALBUMIN HUMAN [Concomitant]
     Active Substance: ALBUMIN HUMAN
     Dosage: UNK
     Route: 042
  5. MIDAZOLAM [Concomitant]
     Active Substance: MIDAZOLAM
     Dosage: 1 UNK
  6. KETAMIN [Concomitant]
     Active Substance: KETAMINE
  7. HYDROMORPHONE [Concomitant]
     Active Substance: HYDROMORPHONE
  8. UNSPECIFIED INGREDIENT [Concomitant]
     Active Substance: UNSPECIFIED INGREDIENT

REACTIONS (9)
  - Hypertension [Recovering/Resolving]
  - Pyrexia [Recovering/Resolving]
  - Hypoxia [Unknown]
  - Respiratory distress [Unknown]
  - Pulmonary oedema [Unknown]
  - Transfusion-associated dyspnoea [Unknown]
  - Transfusion-related acute lung injury [Unknown]
  - Tachycardia [Recovering/Resolving]
  - Infusion related reaction [Unknown]

NARRATIVE: CASE EVENT DATE: 20210729
